FAERS Safety Report 8924893 (Version 1)
Quarter: 2012Q4

REPORT INFORMATION
  Report Type: Spontaneous
  Country: IN (occurrence: None)
  Receive Date: 20121116
  Receipt Date: 20121116
  Transmission Date: 20130627
  Serious: Yes (Other)
  Sender: FDA-Public Use
  Company Number: 2012P1063798

PATIENT
  Age: 15 Year
  Sex: Male

DRUGS (5)
  1. ISONIAZID [Suspect]
     Indication: TUBERCULOUS  MENINGITIS
     Route: 048
  2. RIFAMPICIN [Concomitant]
  3. ETHAMBUTOL [Concomitant]
  4. PYRAZINAMIDE [Concomitant]
  5. UNSPECIFIED CORTICOSTEROID [Concomitant]

REACTIONS (6)
  - Hyperkeratosis [None]
  - Papilloma [None]
  - Acanthosis [None]
  - Penis disorder [None]
  - Scrotal disorder [None]
  - Lichenoid keratosis [None]
